FAERS Safety Report 8470505-5 (Version None)
Quarter: 2012Q2

REPORT INFORMATION
  Report Type: 
  Country: None (occurrence: None)
  Receive Date: 20120627
  Receipt Date: 20110829
  Transmission Date: 20120825
  Serious: No
  Sender: FDA-Public Use
  Company Number: US-MYLANLABS-2011S1018210

PATIENT
  Sex: Male

DRUGS (2)
  1. PERFOROMIST [Suspect]
     Route: 055
  2. PULMICORT [Concomitant]

REACTIONS (2)
  - HEART RATE INCREASED [None]
  - BRONCHIAL SECRETION RETENTION [None]
